FAERS Safety Report 10206394 (Version 1)
Quarter: 2014Q2

REPORT INFORMATION
  Report Type: Spontaneous
  Country: US (occurrence: US)
  Receive Date: 20140530
  Receipt Date: 20140530
  Transmission Date: 20141212
  Serious: Yes (Hospitalization)
  Sender: FDA-Public Use
  Company Number: US-B.I. PHARMACEUTICALS,INC./RIDGEFIELD-2014-BI-22931BP

PATIENT
  Sex: Female

DRUGS (16)
  1. GILOTRIF [Suspect]
     Indication: NEUROBLASTOMA
     Dosage: 40 MG
     Route: 048
     Dates: start: 20140322, end: 20140325
  2. GILOTRIF [Suspect]
     Dosage: 30 MG
     Route: 048
     Dates: start: 20140326
  3. PROVENTIL [Concomitant]
     Route: 065
  4. CALCIUM [Concomitant]
     Route: 065
  5. CAPSAICIN [Concomitant]
     Route: 061
  6. VITAMIN D [Concomitant]
     Route: 065
  7. DEXAMETHASONE [Concomitant]
     Dosage: 16 MG
     Route: 065
     Dates: start: 20140214
  8. HALDOL [Concomitant]
     Route: 065
  9. ATIVAN [Concomitant]
     Route: 065
  10. RITALIN [Concomitant]
     Route: 065
  11. MS CONTIN [Concomitant]
     Dosage: 180 MG
     Route: 065
  12. ZOFRAN [Concomitant]
     Route: 065
  13. OXYCODONE [Concomitant]
     Route: 065
  14. MIRALAX [Concomitant]
     Route: 065
  15. COMPAZINE [Concomitant]
     Route: 065
  16. SENNA [Concomitant]
     Route: 065

REACTIONS (7)
  - Agitation [Not Recovered/Not Resolved]
  - Speech disorder [Not Recovered/Not Resolved]
  - Mental disorder [Not Recovered/Not Resolved]
  - Pain [Not Recovered/Not Resolved]
  - Liver function test abnormal [Not Recovered/Not Resolved]
  - Asthenia [Not Recovered/Not Resolved]
  - Off label use [Unknown]
